FAERS Safety Report 16418273 (Version 2)
Quarter: 2023Q4

REPORT INFORMATION
  Report Type: Spontaneous
  Country: FR (occurrence: FR)
  Receive Date: 20190612
  Receipt Date: 20231113
  Transmission Date: 20240110
  Serious: Yes (Hospitalization, Other)
  Sender: FDA-Public Use
  Company Number: FR-AUROBINDO-AUR-APL-2018-004254

PATIENT
  Age: 46 Year
  Sex: Male
  Weight: 89 kg

DRUGS (6)
  1. IRINOTECAN [Suspect]
     Active Substance: IRINOTECAN
     Indication: Colorectal cancer metastatic
     Dosage: ON 05/JAN/2017 (CYCLE 7) AT THE DOSE OF 165 MG/M2. ()
     Route: 065
     Dates: start: 20160928
  2. OXALIPLATIN [Suspect]
     Active Substance: OXALIPLATIN
     Indication: Colorectal cancer metastatic
     Dosage: ON 20/DEC/2016 (CYCLE 8) AT THE DOSE OF 85 MG/M2. ()
     Route: 065
     Dates: start: 20160928
  3. AVASTIN [Suspect]
     Active Substance: BEVACIZUMAB
     Indication: Colorectal cancer metastatic
     Dosage: UNK
     Route: 065
     Dates: start: 20161011
  4. FLUOROURACIL [Suspect]
     Active Substance: FLUOROURACIL
     Indication: Colorectal cancer metastatic
     Dosage: ON 17/JAN/2017 (CYCLE 9) AT THE DOSE OF 6400 MG/M2. ()
     Route: 065
     Dates: start: 20160928
  5. LEVOLEUCOVORIN CALCIUM [Suspect]
     Active Substance: LEVOLEUCOVORIN CALCIUM
     Indication: Colorectal cancer metastatic
     Dosage: ON 17/JAN/2017 (CYCLE 9) AT THE DOSE OF 100 MG/M2. ()
     Route: 065
     Dates: start: 20160928
  6. FLUOROURACIL [Suspect]
     Active Substance: FLUOROURACIL
     Indication: Colorectal cancer metastatic
     Dosage: UNK
     Route: 065
     Dates: start: 20160928

REACTIONS (4)
  - Pelvic venous thrombosis [Recovered/Resolved]
  - Pulmonary embolism [Recovered/Resolved]
  - Thrombosis [Recovered/Resolved]
  - Portal vein embolisation [Recovered/Resolved]

NARRATIVE: CASE EVENT DATE: 20170103
